FAERS Safety Report 16100708 (Version 1)
Quarter: 2019Q1

REPORT INFORMATION
  Report Type: Spontaneous
  Country: US (occurrence: US)
  Receive Date: 20190321
  Receipt Date: 20190321
  Transmission Date: 20190418
  Serious: Yes (Other)
  Sender: FDA-Public Use
  Company Number: US-BAYER-2019-049627

PATIENT
  Age: 53 Year
  Sex: Female

DRUGS (4)
  1. ADEMPAS [Suspect]
     Active Substance: RIOCIGUAT
     Indication: PULMONARY ARTERIAL HYPERTENSION
     Dosage: 2.5 MG, TID
     Route: 065
     Dates: start: 20160520
  2. AMBRISENTAN [Suspect]
     Active Substance: AMBRISENTAN
     Indication: PULMONARY ARTERIAL HYPERTENSION
     Dosage: 5 MG, QD
     Dates: start: 20190214
  3. AMBRISENTAN [Suspect]
     Active Substance: AMBRISENTAN
     Indication: PULMONARY ARTERIAL HYPERTENSION
     Dosage: 10 MG
     Route: 065
     Dates: start: 20160601
  4. AMBRISENTAN [Suspect]
     Active Substance: AMBRISENTAN
     Indication: PULMONARY ARTERIAL HYPERTENSION
     Dosage: 5 MG, QD
     Route: 065
     Dates: start: 20160609

REACTIONS (13)
  - Malaise [Not Recovered/Not Resolved]
  - Insomnia [Unknown]
  - Fall [Unknown]
  - Pulmonary arterial hypertension [Unknown]
  - Fatigue [None]
  - Feeling abnormal [Not Recovered/Not Resolved]
  - Product availability issue [None]
  - Loss of consciousness [Not Recovered/Not Resolved]
  - Pneumonia [Recovered/Resolved]
  - Fluid retention [Not Recovered/Not Resolved]
  - Dizziness [Not Recovered/Not Resolved]
  - Incorrect product administration duration [None]
  - Head injury [Unknown]

NARRATIVE: CASE EVENT DATE: 20181025
